FAERS Safety Report 14596744 (Version 1)
Quarter: 2018Q1

REPORT INFORMATION
  Report Type: Spontaneous
  Country: IT (occurrence: IT)
  Receive Date: 20180304
  Receipt Date: 20180304
  Transmission Date: 20180509
  Serious: Yes (Life-Threatening)
  Sender: FDA-Public Use
  Company Number: IT-TEVA-2018-IT-862287

PATIENT
  Age: 67 Year
  Sex: Female

DRUGS (3)
  1. CARBOPLATIN. [Suspect]
     Active Substance: CARBOPLATIN
     Indication: OVARIAN CANCER
     Route: 042
     Dates: start: 20170822, end: 20171214
  2. PACLITAXEL ACCORD HEALTHCARE ITALIA [Concomitant]
     Active Substance: PACLITAXEL
     Route: 065
     Dates: start: 20170822, end: 20171214
  3. AVASTIN [Concomitant]
     Active Substance: BEVACIZUMAB
     Route: 065
     Dates: start: 20170822, end: 20171214

REACTIONS (5)
  - Paraesthesia [Recovered/Resolved]
  - Urticaria [Recovered/Resolved]
  - Back pain [Recovered/Resolved]
  - Rash [Recovered/Resolved]
  - Hypersensitivity [Recovered/Resolved]

NARRATIVE: CASE EVENT DATE: 20171005
